FAERS Safety Report 5511433-4 (Version None)
Quarter: 2007Q4

REPORT INFORMATION
  Report Type: 
  Country: None (occurrence: None)
  Receive Date: 20071109
  Receipt Date: 20071029
  Transmission Date: 20080405
  Serious: Yes (Other)
  Sender: FDA-Public Use
  Company Number: US-JNJFOC-20070805674

PATIENT
  Sex: Female
  Weight: 54.43 kg

DRUGS (9)
  1. DURAGESIC-100 [Suspect]
     Route: 062
  2. DURAGESIC-100 [Suspect]
     Indication: PAIN
     Route: 062
  3. FUROSEMIDE [Concomitant]
     Indication: FLUID RETENTION
     Route: 048
  4. DIAZEPAM [Concomitant]
     Indication: ANXIETY
     Route: 048
  5. HALCION [Concomitant]
     Indication: SLEEP DISORDER
     Dosage: 2 TABLETS
     Route: 048
  6. DITROPAN XL [Concomitant]
     Indication: URINE ABNORMALITY
     Route: 048
  7. ASPIRIN [Concomitant]
     Indication: ISCHAEMIC HEART DISEASE PROPHYLAXIS
     Route: 048
  8. HUMULIN R [Concomitant]
     Indication: DIABETES MELLITUS
  9. LANTUS [Concomitant]
     Indication: DIABETES MELLITUS

REACTIONS (9)
  - ANXIETY [None]
  - ARTHRALGIA [None]
  - ARTHROSCOPY ABNORMAL [None]
  - BLOOD GLUCOSE INCREASED [None]
  - COMA [None]
  - DRUG INEFFECTIVE [None]
  - DYSPEPSIA [None]
  - NEURALGIA [None]
  - PNEUMONIA [None]
